FAERS Safety Report 6529981-7 (Version None)
Quarter: 2010Q1

REPORT INFORMATION
  Report Type: 
  Country: None (occurrence: None)
  Receive Date: 20100107
  Receipt Date: 20091229
  Transmission Date: 20100710
  Serious: Yes (Hospitalization, Other)
  Sender: FDA-Public Use
  Company Number: US-PFIZER INC-2009296605

PATIENT
  Sex: Female

DRUGS (1)
  1. SUTENT [Suspect]
     Indication: GASTROINTESTINAL STROMAL TUMOUR
     Dosage: 37.5 MG, 1X/DAY
     Route: 048
     Dates: start: 20081101, end: 20091108

REACTIONS (3)
  - HEPATIC HAEMORRHAGE [None]
  - RENAL HAEMORRHAGE [None]
  - THROMBOSIS [None]
